FAERS Safety Report 7537893-5 (Version None)
Quarter: 2011Q2

REPORT INFORMATION
  Report Type: 
  Country: None (occurrence: None)
  Receive Date: 20110609
  Receipt Date: 20110608
  Transmission Date: 20111010
  Serious: Yes (Other)
  Sender: FDA-Public Use
  Company Number: US-UCBSA-031293

PATIENT
  Sex: Female

DRUGS (2)
  1. CIMZIA [Suspect]
     Indication: CROHN'S DISEASE
     Route: 058
     Dates: start: 20090109
  2. CIMZIA [Suspect]
     Route: 058

REACTIONS (3)
  - KNEE OPERATION [None]
  - CONSTIPATION [None]
  - BOWEL MOVEMENT IRREGULARITY [None]
